APPROVED DRUG PRODUCT: GLUTETHIMIDE
Active Ingredient: GLUTETHIMIDE
Strength: 250MG
Dosage Form/Route: TABLET;ORAL
Application: A089458 | Product #001
Applicant: HALSEY DRUG CO INC
Approved: Oct 10, 1986 | RLD: No | RS: No | Type: DISCN